FAERS Safety Report 15514715 (Version 2)
Quarter: 2018Q4

REPORT INFORMATION
  Report Type: Spontaneous
  Country: FR (occurrence: FR)
  Receive Date: 20181016
  Receipt Date: 20181120
  Transmission Date: 20190205
  Serious: Yes (Other)
  Sender: FDA-Public Use
  Company Number: PHHY2018FR110269

PATIENT
  Sex: Female

DRUGS (40)
  1. METFORMIN HYDROCHLORIDE. [Suspect]
     Active Substance: METFORMIN HYDROCHLORIDE
     Indication: FOETAL EXPOSURE DURING PREGNANCY
     Dosage: MOTHER DOSE:: 1700 MG, QD/ 850 MG DAILY
     Route: 064
     Dates: start: 20160930, end: 20170224
  2. METFORMIN HYDROCHLORIDE. [Suspect]
     Active Substance: METFORMIN HYDROCHLORIDE
     Indication: FOETAL EXPOSURE DURING PREGNANCY
     Dosage: MOTHER DOSE :1700 MG, QD
     Route: 064
     Dates: start: 20160930
  3. LOXEN L P [Suspect]
     Active Substance: NICARDIPINE HYDROCHLORIDE
     Indication: FOETAL EXPOSURE DURING PREGNANCY
     Dosage: MOTHER DOSE: 50 MG, UNK
     Route: 064
  4. POTASSIUM CHLORIDE. [Suspect]
     Active Substance: POTASSIUM CHLORIDE
     Indication: FOETAL EXPOSURE DURING PREGNANCY
     Dosage: MOTHER DOSE:: 1200 MG, UNK
     Route: 064
  5. GLICLAZIDE [Suspect]
     Active Substance: GLICLAZIDE
     Indication: FOETAL EXPOSURE DURING PREGNANCY
     Dosage: MOTHER DOSE:: 120 MG, QD
     Route: 064
     Dates: start: 20160930
  6. NICARDIPINE HYDROCHLORIDE. [Suspect]
     Active Substance: NICARDIPINE HYDROCHLORIDE
     Indication: FOETAL EXPOSURE DURING PREGNANCY
     Dosage: MOTHER DOSE: 50 MG, UNK
     Route: 064
  7. FORLAX (MACROGOL 4000) [Suspect]
     Active Substance: POLYETHYLENE GLYCOL 4000
     Indication: FOETAL EXPOSURE DURING PREGNANCY
     Dosage: MOTHER DOSE:1 DF, QD
     Route: 064
     Dates: start: 20160930
  8. LABETALOL [Suspect]
     Active Substance: LABETALOL\LABETALOL HYDROCHLORIDE
     Indication: FOETAL EXPOSURE DURING PREGNANCY
     Dosage: MOTHER DOSE :80 MG, QD
     Route: 064
     Dates: start: 20170516
  9. LANTUS [Suspect]
     Active Substance: INSULIN GLARGINE
     Indication: FOETAL EXPOSURE DURING PREGNANCY
     Dosage: MOTHER DOSE: 20 MG, QD
     Route: 064
     Dates: start: 20170224
  10. LOXEN L P [Suspect]
     Active Substance: NICARDIPINE HYDROCHLORIDE
     Dosage: MOTHER DOSE: 1 DF, UNK
     Route: 064
     Dates: start: 20170313
  11. RAMIPRIL. [Suspect]
     Active Substance: RAMIPRIL
     Indication: FOETAL EXPOSURE DURING PREGNANCY
     Dosage: MOTHER DOSE: 2.5 MG, QD
     Route: 064
     Dates: start: 20160930
  12. METFORMIN HYDROCHLORIDE. [Suspect]
     Active Substance: METFORMIN HYDROCHLORIDE
     Dosage: MOTHER DOSE:: 850 MG, QD
     Route: 064
     Dates: start: 20170224
  13. METFORMIN HYDROCHLORIDE. [Suspect]
     Active Substance: METFORMIN HYDROCHLORIDE
     Dosage: MOTHER DOSE :850 MG, QD
     Route: 064
     Dates: start: 20170224
  14. FOLIC ACID. [Suspect]
     Active Substance: FOLIC ACID
     Indication: FOETAL EXPOSURE DURING PREGNANCY
     Dosage: MOTHER DOSE : 5 MG, QD
     Route: 062
     Dates: start: 20170924
  15. FERROUS SULFATE. [Suspect]
     Active Substance: FERROUS SULFATE
     Indication: FOETAL EXPOSURE DURING PREGNANCY
     Dosage: MOTHER DOSE: 1 DF, QD
     Route: 064
     Dates: start: 20170313
  16. LASIX [Suspect]
     Active Substance: FUROSEMIDE
     Indication: FOETAL EXPOSURE DURING PREGNANCY
     Dosage: MOTHER DOSE: 40 MG
     Route: 064
  17. LOXEN L P [Suspect]
     Active Substance: NICARDIPINE HYDROCHLORIDE
     Dosage: MOTHER DOSE: 2 DF, QD
     Route: 064
     Dates: start: 20161130
  18. METHYLDOPA. [Suspect]
     Active Substance: METHYLDOPA
     Indication: FOETAL EXPOSURE DURING PREGNANCY
     Dosage: MOTHER DOSE:1500 MG, QD
     Route: 064
     Dates: start: 20170720
  19. MACROGOL [Suspect]
     Active Substance: POLYETHYLENE GLYCOLS
     Indication: FOETAL EXPOSURE DURING PREGNANCY
     Dosage: MOTHER DOSE :1 DF, QD
     Route: 064
     Dates: start: 20160930
  20. AMITRIPTYLINE HYDROCHLORIDE. [Suspect]
     Active Substance: AMITRIPTYLINE HYDROCHLORIDE
     Indication: FOETAL EXPOSURE DURING PREGNANCY
     Dosage: MOTHER DOSE :2 DF, QD
     Route: 064
     Dates: start: 20160930
  21. CHLORPROMAZINE HYDROCHLORIDE. [Suspect]
     Active Substance: CHLORPROMAZINE HYDROCHLORIDE
     Indication: FOETAL EXPOSURE DURING PREGNANCY
     Dosage: MOTHER DOSE: 25 MG, QD
     Route: 064
     Dates: start: 20170720
  22. GABAPENTIN. [Suspect]
     Active Substance: GABAPENTIN
     Dosage: MOTHER DOSE :800 MG, QD
     Route: 064
     Dates: start: 20160930
  23. NICOTINE. [Suspect]
     Active Substance: NICOTINE
     Indication: FOETAL EXPOSURE DURING PREGNANCY
     Dosage: MOTHER DOSE: 7 MG, QD
     Route: 064
     Dates: start: 20170224
  24. TRAMADOL HYDROCHLORIDE. [Suspect]
     Active Substance: TRAMADOL HYDROCHLORIDE
     Indication: FOETAL EXPOSURE DURING PREGNANCY
     Dosage: MOTHER DOSE : 50 MG, QD
     Route: 064
     Dates: start: 20160930
  25. FOLIC ACID. [Suspect]
     Active Substance: FOLIC ACID
     Indication: FOETAL EXPOSURE DURING PREGNANCY
     Dosage: MOTHER DOSE: 5 MG, QD
     Route: 064
     Dates: start: 20170224
  26. LABETALOL [Suspect]
     Active Substance: LABETALOL\LABETALOL HYDROCHLORIDE
     Indication: FOETAL EXPOSURE DURING PREGNANCY
     Dosage: MOTHER DOSE: 80 MG, QD
     Route: 064
     Dates: start: 20170516
  27. FOLINIC ACID [Suspect]
     Active Substance: LEUCOVORIN
     Indication: FOETAL EXPOSURE DURING PREGNANCY
     Dosage: MOTHER DOSE:5 MG, QD
     Route: 064
     Dates: start: 20170224
  28. FOLINIC ACID [Suspect]
     Active Substance: LEUCOVORIN
     Indication: FOETAL EXPOSURE DURING PREGNANCY
     Dosage: MOTHER DOSE :5 MG, QD
     Route: 064
     Dates: start: 20170224, end: 20170313
  29. LEVEMIR [Suspect]
     Active Substance: INSULIN DETEMIR
     Indication: FOETAL EXPOSURE DURING PREGNANCY
     Dosage: MOTHER DOSE: 10 IU, QD
     Route: 064
     Dates: start: 20160930
  30. ARIPIPRAZOLE. [Suspect]
     Active Substance: ARIPIPRAZOLE
     Indication: FOETAL EXPOSURE DURING PREGNANCY
     Dosage: MOTHER DOSE :10 MG, QD
     Route: 064
     Dates: start: 20160930
  31. GABAPENTIN. [Suspect]
     Active Substance: GABAPENTIN
     Indication: FOETAL EXPOSURE DURING PREGNANCY
     Dosage: MOTHER DOSE : 400 MG, QD
     Route: 064
     Dates: start: 20160930
  32. AMOXICILLIN. [Suspect]
     Active Substance: AMOXICILLIN
     Indication: FOETAL EXPOSURE DURING PREGNANCY
     Dosage: MOTHER DOSE : 3 G, QD
     Route: 064
     Dates: start: 20170804
  33. GLICLAZIDE [Suspect]
     Active Substance: GLICLAZIDE
     Indication: FOETAL EXPOSURE DURING PREGNANCY
     Dosage: MOTHER DOSE :120 MG, QD
     Route: 064
     Dates: start: 20160930
  34. NICOPATCH [Suspect]
     Active Substance: NICOTINE
     Indication: FOETAL EXPOSURE DURING PREGNANCY
     Dosage: MOTHER DOSE:7 MG, QD
     Route: 064
     Dates: start: 20170224
  35. METHYLDOPA. [Suspect]
     Active Substance: METHYLDOPA
     Indication: FOETAL EXPOSURE DURING PREGNANCY
     Dosage: MOTHER DOSE: 1500 MG, QD
     Route: 064
     Dates: start: 20170720
  36. DIFFU-K [Suspect]
     Active Substance: POTASSIUM CHLORIDE
     Indication: FOETAL EXPOSURE DURING PREGNANCY
     Dosage: MOTHER DOSE:1200 MG, UNK
     Route: 064
  37. LAROXYL [Suspect]
     Active Substance: AMITRIPTYLINE HYDROCHLORIDE
     Indication: FOETAL EXPOSURE DURING PREGNANCY
     Dosage: MOTHER DOSE:: 2 DF, QD
     Route: 064
     Dates: start: 20160930
  38. HUMALOG [Suspect]
     Active Substance: INSULIN LISPRO
     Indication: FOETAL EXPOSURE DURING PREGNANCY
     Dosage: MOTHER DOSE::  QD 21 UG/M2
     Route: 064
     Dates: start: 20170224
  39. RAMIPRIL. [Suspect]
     Active Substance: RAMIPRIL
     Indication: FOETAL EXPOSURE DURING PREGNANCY
     Dosage: MOTHER DOSE :2.5 MG, QD
     Route: 064
     Dates: start: 20160930
  40. INSULIN LISPRO [Suspect]
     Active Substance: INSULIN LISPRO
     Indication: FOETAL EXPOSURE DURING PREGNANCY
     Dosage: MOTHER DOSE: 21 MG, QD
     Route: 064
     Dates: start: 20170224

REACTIONS (2)
  - Foetal exposure during pregnancy [Unknown]
  - Premature baby [Unknown]
